FAERS Safety Report 8031425-3 (Version None)
Quarter: 2011Q4

REPORT INFORMATION
  Report Type: 
  Country: None (occurrence: None)
  Receive Date: 20111201
  Receipt Date: 20110722
  Transmission Date: 20120403
  Serious: Yes (Death)
  Sender: FDA-Public Use
  Company Number: 292216USA

PATIENT
  Age: 37 Year
  Sex: Male

DRUGS (1)
  1. RIBAVIRIN [Suspect]
     Indication: HEPATITIS C
     Dosage: 600MG IN MORNING, 400MG IN EVENING
     Dates: start: 20110329, end: 20110706

REACTIONS (1)
  - DEATH [None]
